FAERS Safety Report 6092982-X (Version None)
Quarter: 2009Q1

REPORT INFORMATION
  Report Type: 
  Country: None (occurrence: None)
  Receive Date: 20090224
  Receipt Date: 20090209
  Transmission Date: 20090719
  Serious: Yes (Other)
  Sender: FDA-Public Use
  Company Number: IMP_042555_2009

PATIENT
  Age: 56 Year
  Sex: Female

DRUGS (5)
  1. BUPROPION HCL [Suspect]
     Indication: DEPRESSION
     Dosage: 300 MG QD ORAL
     Route: 048
     Dates: start: 20070101, end: 20090209
  2. FLUOXETINE [Concomitant]
  3. TRAZODONE HCL [Concomitant]
  4. TRILEPTAL [Concomitant]
  5. PROZAC /00724401/ [Concomitant]

REACTIONS (7)
  - AFFECT LABILITY [None]
  - DEPRESSION [None]
  - DISTURBANCE IN ATTENTION [None]
  - DRUG INEFFECTIVE [None]
  - MEDICATION RESIDUE [None]
  - MEMORY IMPAIRMENT [None]
  - SUICIDAL IDEATION [None]
